FAERS Safety Report 13863272 (Version 1)
Quarter: 2017Q3

REPORT INFORMATION
  Report Type: Spontaneous
  Country: GB (occurrence: GB)
  Receive Date: 20170814
  Receipt Date: 20170814
  Transmission Date: 20171127
  Serious: Yes (Hospitalization, Other)
  Sender: FDA-Public Use
  Company Number: GB-ACCORD-056950

PATIENT
  Age: 47 Year
  Sex: Female
  Weight: 72 kg

DRUGS (1)
  1. TOPIRAMATE. [Suspect]
     Active Substance: TOPIRAMATE
     Indication: MIGRAINE WITH AURA
     Dosage: REDUCING DOSE BY 25 MG UNTIL ZERO.
     Route: 048
     Dates: start: 20150710, end: 20170429

REACTIONS (8)
  - Oropharyngeal pain [Unknown]
  - Lymphopenia [Recovered/Resolved]
  - Contusion [Unknown]
  - Infection [Unknown]
  - Fatigue [Unknown]
  - Aphonia [Unknown]
  - Somnolence [Unknown]
  - Neutropenia [Recovered/Resolved]

NARRATIVE: CASE EVENT DATE: 20160113
